FAERS Safety Report 13341844 (Version 1)
Quarter: 2017Q1

REPORT INFORMATION
  Report Type: Spontaneous
  Country: US (occurrence: US)
  Receive Date: 20170316
  Receipt Date: 20170316
  Transmission Date: 20170428
  Serious: No
  Sender: FDA-Public Use
  Company Number: US-ROCHE-1736043

PATIENT
  Sex: Female

DRUGS (1)
  1. XENICAL [Suspect]
     Active Substance: ORLISTAT
     Indication: OVERWEIGHT
     Route: 065

REACTIONS (1)
  - Rectal haemorrhage [Not Recovered/Not Resolved]
